FAERS Safety Report 14147133 (Version 1)
Quarter: 2017Q4

REPORT INFORMATION
  Report Type: Spontaneous
  Country: US (occurrence: US)
  Receive Date: 20171101
  Receipt Date: 20171101
  Transmission Date: 20180321
  Serious: Yes (Other)
  Sender: FDA-Public Use
  Company Number: US-BRISTOL-MYERS SQUIBB COMPANY-BMS-2017-095763

PATIENT
  Age: 6 Decade
  Sex: Male

DRUGS (1)
  1. OPDIVO [Suspect]
     Active Substance: NIVOLUMAB
     Indication: HEAD AND NECK CANCER
     Dosage: UNKNOWN TO REPORTER
     Route: 042

REACTIONS (5)
  - Haemoptysis [Unknown]
  - Face oedema [Unknown]
  - Vomiting [Unknown]
  - Periorbital oedema [Unknown]
  - Nausea [Unknown]
